FAERS Safety Report 8880589 (Version 1)
Quarter: 2012Q4

REPORT INFORMATION
  Report Type: 
  Country: GB (occurrence: GB)
  Receive Date: 20121101
  Receipt Date: 20121101
  Transmission Date: 20130627
  Serious: Yes (Hospitalization, Other)
  Sender: FDA-Public Use
  Company Number: GB-PAR PHARMACEUTICAL, INC-2012SCPR004678

PATIENT

DRUGS (7)
  1. TRAMADOL [Suspect]
     Indication: PRODUCT USED FOR UNKNOWN INDICATION
     Dosage: UNK, Unknown
     Route: 065
  2. ONDANSETRON [Suspect]
     Indication: ANTIEMETIC SUPPORTIVE CARE
     Dosage: 4 mg, Unknown
     Route: 065
  3. FENTANYL CITRATE [Suspect]
     Indication: ANALGESIC THERAPY
     Dosage: 150 mcg, Unknown
     Route: 065
  4. FENTANYL CITRATE [Suspect]
     Indication: PARATHYROIDECTOMY
  5. CITALOPRAM [Interacting]
     Indication: PRODUCT USED FOR UNKNOWN INDICATION
     Dosage: UNK, Unknown
     Route: 065
  6. METHYLENE BLUE [Interacting]
     Indication: DIAGNOSTIC PROCEDURE
     Dosage: 5.5 mg/kg in 300 mL of 0.9% sodium chloride
  7. METHYLENE BLUE [Interacting]
     Indication: PARATHYROIDECTOMY

REACTIONS (5)
  - Respiratory distress [Recovered/Resolved]
  - Restless legs syndrome [Recovered/Resolved]
  - Drug interaction [Unknown]
  - Serotonin syndrome [Recovered/Resolved]
  - Pneumonia [Recovered/Resolved]
